FAERS Safety Report 8285532-0 (Version None)
Quarter: 2012Q2

REPORT INFORMATION
  Report Type: 
  Country: None (occurrence: None)
  Receive Date: 20120413
  Receipt Date: 20111209
  Transmission Date: 20120825
  Serious: No
  Sender: FDA-Public Use
  Company Number: US-ASTRAZENECA-2011SE74628

PATIENT
  Sex: Female

DRUGS (4)
  1. NEXIUM [Suspect]
     Indication: GASTROOESOPHAGEAL REFLUX DISEASE
     Route: 048
  2. PRAVASTATIN [Concomitant]
  3. DIAVAN [Concomitant]
  4. VITAMIN TAB [Concomitant]

REACTIONS (2)
  - DRUG DOSE OMISSION [None]
  - PRURITUS [None]
